FAERS Safety Report 6218985-X (Version None)
Quarter: 2009Q2

REPORT INFORMATION
  Report Type: 
  Country: None (occurrence: None)
  Receive Date: 20090608
  Receipt Date: 20090601
  Transmission Date: 20091009
  Serious: No
  Sender: FDA-Public Use
  Company Number: PHHY2009JP17457

PATIENT
  Sex: Female
  Weight: 61 kg

DRUGS (3)
  1. NEORAL [Suspect]
     Indication: URTICARIA
     Dosage: 25 MG, QD
     Route: 048
     Dates: start: 20060501, end: 20080909
  2. NEORAL [Suspect]
     Dosage: 25 MG, Q48H
     Route: 048
     Dates: start: 20080910
  3. NEORAL [Suspect]
     Dosage: PRN: 25 MG/DAY OR 25 MG/ALTERNATE DAY

REACTIONS (1)
  - GINGIVAL ULCERATION [None]
